FAERS Safety Report 4871257-8 (Version None)
Quarter: 2005Q4

REPORT INFORMATION
  Report Type: 
  Country: None (occurrence: None)
  Receive Date: 20051229
  Receipt Date: 20051031
  Transmission Date: 20060501
  Serious: Yes (Other)
  Sender: FDA-Public Use
  Company Number: 2005169467

PATIENT
  Age: 58 Year
  Sex: Female
  Weight: 68.0396 kg

DRUGS (5)
  1. BEXTRA [Suspect]
     Indication: OSTEOARTHRITIS
     Dosage: 10 MG (10 MG, 1 IN 1 D)
     Dates: start: 20040601
  2. LEXAPRO [Concomitant]
  3. KLONOPIN [Concomitant]
  4. EFFEXOR [Concomitant]
  5. AMBIEN [Concomitant]

REACTIONS (4)
  - ABSCESS [None]
  - DERMATOPHYTOSIS [None]
  - NAIL INFECTION [None]
  - NEURODERMATITIS [None]
